FAERS Safety Report 5939419-6 (Version None)
Quarter: 2008Q4

REPORT INFORMATION
  Report Type: 
  Country: None (occurrence: None)
  Receive Date: 20081103
  Receipt Date: 20081030
  Transmission Date: 20090506
  Serious: Yes (Death)
  Sender: FDA-Public Use
  Company Number: US-GILEAD-2008-0018036

PATIENT
  Sex: Female

DRUGS (13)
  1. LETAIRIS [Suspect]
     Indication: PULMONARY HYPERTENSION
     Route: 048
     Dates: start: 20070828
  2. REVATIO [Concomitant]
     Route: 048
  3. SPIRONOLACTONE [Concomitant]
     Route: 048
  4. FUROSEMIDE [Concomitant]
     Route: 048
  5. LEVOTHROID [Concomitant]
     Route: 048
  6. FLUOXETINE [Concomitant]
     Route: 048
  7. SULFATRIM [Concomitant]
     Dosage: 400/80MG
     Route: 048
  8. AMITRIPTYLINE HCL [Concomitant]
     Route: 048
  9. TYLENOL W/ CODEINE [Concomitant]
     Route: 048
  10. TYLENOL [Concomitant]
     Route: 048
  11. BACTRIM DS [Concomitant]
  12. PROZAC [Concomitant]
  13. DITROPAN [Concomitant]

REACTIONS (1)
  - PULMONARY HYPERTENSION [None]
